FAERS Safety Report 15042700 (Version 1)
Quarter: 2018Q2

REPORT INFORMATION
  Report Type: Spontaneous
  Country: US (occurrence: US)
  Receive Date: 20180531
  Receipt Date: 20180531
  Transmission Date: 20180711
  Serious: Yes (Hospitalization)
  Sender: FDA-Public Use
  Company Number: None

PATIENT
  Age: 63 Year
  Sex: Male

DRUGS (2)
  1. AFINITOR [Suspect]
     Active Substance: EVEROLIMUS
     Route: 048
     Dates: start: 20170926, end: 20180531
  2. LENVIMA [Concomitant]
     Active Substance: LENVATINIB

REACTIONS (4)
  - Brain neoplasm malignant [None]
  - Visual impairment [None]
  - Balance disorder [None]
  - Drug dose omission [None]

NARRATIVE: CASE EVENT DATE: 20180413
